FAERS Safety Report 12911371 (Version 1)
Quarter: 2016Q4

REPORT INFORMATION
  Report Type: Spontaneous
  Country: US (occurrence: US)
  Receive Date: 20161102
  Receipt Date: 20161102
  Transmission Date: 20170207
  Serious: Yes (Disabling)
  Sender: FDA-Public Use
  Company Number: None

PATIENT
  Age: 32 Year
  Sex: Female
  Weight: 105.3 kg

DRUGS (1)
  1. CYMBALTA [Suspect]
     Active Substance: DULOXETINE HYDROCHLORIDE
     Indication: BIPOLAR DISORDER
     Dates: start: 20120301, end: 20160101

REACTIONS (16)
  - Fatigue [None]
  - Feeling abnormal [None]
  - Anger [None]
  - Paraesthesia [None]
  - Hyperhidrosis [None]
  - Vitreous floaters [None]
  - Tremor [None]
  - Impaired work ability [None]
  - Anxiety [None]
  - Nausea [None]
  - Headache [None]
  - Economic problem [None]
  - Withdrawal syndrome [None]
  - Confusional state [None]
  - Suicidal ideation [None]
  - Product quality issue [None]

NARRATIVE: CASE EVENT DATE: 20160101
